FAERS Safety Report 21265919 (Version 1)
Quarter: 2022Q3

REPORT INFORMATION
  Report Type: Spontaneous
  Country: US (occurrence: None)
  Receive Date: 20220826
  Receipt Date: 20220826
  Transmission Date: 20221027
  Serious: Yes (Death)
  Sender: FDA-Public Use
  Company Number: None

PATIENT
  Age: 78 Year
  Sex: Female

DRUGS (1)
  1. REVLIMID [Suspect]
     Active Substance: LENALIDOMIDE
     Indication: Plasma cell myeloma
     Dosage: FREQUENCY : DAILY;?
     Route: 048
     Dates: start: 20200817, end: 20220817

REACTIONS (6)
  - Organ failure [None]
  - Sepsis [None]
  - Elderly [None]
  - Infection susceptibility increased [None]
  - Immunodeficiency [None]
  - Pre-existing disease [None]

NARRATIVE: CASE EVENT DATE: 20220817
